FAERS Safety Report 8433016 (Version 2)
Quarter: 2012Q4

REPORT INFORMATION
  Report Type: 
  Country: CA (occurrence: CA)
  Receive Date: 20120229
  Receipt Date: 20120831
  Transmission Date: 20130627
  Serious: Yes (Other)
  Sender: FDA-Public Use
  Company Number: CA-ROCHE-1044104

PATIENT
  Age: 58 None
  Sex: Female

DRUGS (2)
  1. XOLAIR [Suspect]
     Indication: ASTHMA
     Route: 058
     Dates: start: 20090805
  2. XOLAIR [Suspect]
     Route: 058
     Dates: start: 20100924

REACTIONS (3)
  - Pneumonia [Unknown]
  - Cough [Unknown]
  - Lung infection [Unknown]
